FAERS Safety Report 4355400-5 (Version None)
Quarter: 2004Q2

REPORT INFORMATION
  Report Type: 
  Country: None (occurrence: None)
  Receive Date: 20040504
  Receipt Date: 20040421
  Transmission Date: 20050107
  Serious: Yes (Other)
  Sender: FDA-Public Use
  Company Number: WAES 0404USA02063

PATIENT

DRUGS (1)
  1. TIMOPTIC [Suspect]
     Dosage: UNK/UNK/OPTH
     Route: 047

REACTIONS (1)
  - CATARACT NUCLEAR [None]
